FAERS Safety Report 8360101-2 (Version None)
Quarter: 2012Q2

REPORT INFORMATION
  Report Type: 
  Country: None (occurrence: None)
  Receive Date: 20120515
  Receipt Date: 20110606
  Transmission Date: 20120825
  Serious: Yes (Hospitalization)
  Sender: FDA-Public Use
  Company Number: US-ALEXION-A201100814

PATIENT
  Sex: Male

DRUGS (6)
  1. FLAXSEED OIL [Concomitant]
     Dosage: 1 TAB, BID
  2. SOLIRIS [Suspect]
     Indication: PAROXYSMAL NOCTURNAL HAEMOGLOBINURIA
     Dosage: UNK, SINGLE DOSE
     Route: 042
     Dates: start: 20101119, end: 20101119
  3. SOLIRIS [Suspect]
     Indication: THROMBOSIS PROPHYLAXIS
     Dosage: 600 MG, SINGLE
     Dates: start: 20110523, end: 20110523
  4. LOVAZA [Concomitant]
     Dosage: 1 TAB, BID
  5. COLACE [Concomitant]
     Dosage: 100 MG, BID
  6. IBUPROFEN (ADVIL) [Concomitant]
     Dosage: UNK, PRN

REACTIONS (4)
  - CHOLELITHIASIS [None]
  - HAEMOGLOBIN DECREASED [None]
  - BILE DUCT STONE [None]
  - ADHESION [None]
